FAERS Safety Report 7490622-6 (Version None)
Quarter: 2011Q2

REPORT INFORMATION
  Report Type: 
  Country: None (occurrence: None)
  Receive Date: 20110519
  Receipt Date: 20110516
  Transmission Date: 20111010
  Serious: Yes (Life-Threatening)
  Sender: FDA-Public Use
  Company Number: FR-BRISTOL-MYERS SQUIBB COMPANY-15750649

PATIENT
  Age: 53 Year
  Sex: Female

DRUGS (7)
  1. GLICLAZIDE [Concomitant]
     Indication: DIABETES MELLITUS
     Route: 048
     Dates: start: 20100701
  2. ALPRAZOLAM [Concomitant]
     Indication: ANXIETY
     Route: 048
     Dates: start: 20080801
  3. EZETIMIBE [Concomitant]
     Indication: DYSLIPIDAEMIA
     Dosage: 1 DF=1 TABS OF INEGY 10 MG/20 MG
     Dates: start: 20100325
  4. ONGLYZA [Suspect]
     Indication: DIABETES MELLITUS
     Dates: start: 20110202, end: 20110218
  5. HYDROXYZINE [Concomitant]
     Indication: ANXIETY
     Route: 048
     Dates: start: 20090101
  6. LEVOTHYROXINE SODIUM [Concomitant]
     Indication: HYPOTHYROIDISM
     Route: 048
  7. FUROSEMIDE [Concomitant]
     Indication: HYPERTENSION
     Dosage: 1 DF= 1 CAPS OF ALDALIX 50 MG/20 MG
     Dates: start: 20090801

REACTIONS (3)
  - AGGRESSION [None]
  - ANXIETY [None]
  - DEPRESSION [None]
